FAERS Safety Report 21453390 (Version 2)
Quarter: 2023Q1

REPORT INFORMATION
  Report Type: Report from Study
  Country: US (occurrence: US)
  Receive Date: 20221013
  Receipt Date: 20230109
  Transmission Date: 20230418
  Serious: Yes (Other)
  Sender: FDA-Public Use
  Company Number: US-ABBVIE-4152916

PATIENT
  Age: 64 Year
  Sex: Female
  Weight: 111.2 kg

DRUGS (5)
  1. HUMIRA [Suspect]
     Active Substance: ADALIMUMAB
     Indication: Rheumatoid arthritis
     Route: 058
     Dates: start: 20220207
  2. HUMIRA [Suspect]
     Active Substance: ADALIMUMAB
     Route: 058
     Dates: end: 202104
  3. HUMIRA [Suspect]
     Active Substance: ADALIMUMAB
     Dosage: START DATE 2021
     Route: 058
     Dates: end: 202112
  4. HUMIRA [Suspect]
     Active Substance: ADALIMUMAB
     Dosage: START DATE 2021
     Route: 058
     Dates: end: 20211215
  5. PFIZER-BIONTECH COVID-19 VACCINE [Concomitant]
     Active Substance: TOZINAMERAN
     Indication: COVID-19 immunisation
     Dosage: FREQUENCY ONE IN ONCE
     Route: 030

REACTIONS (4)
  - Hip arthroplasty [Unknown]
  - Limb asymmetry [Unknown]
  - Hip arthroplasty [Unknown]
  - Wound dehiscence [Unknown]

NARRATIVE: CASE EVENT DATE: 20210601
